FAERS Safety Report 24268334 (Version 1)
Quarter: 2024Q3

REPORT INFORMATION
  Report Type: Spontaneous
  Country: US (occurrence: US)
  Receive Date: 20240830
  Receipt Date: 20240830
  Transmission Date: 20241017
  Serious: Yes (Other)
  Sender: SERVIER
  Company Number: US-SERVIER-S24010748

PATIENT

DRUGS (1)
  1. TIBSOVO [Suspect]
     Active Substance: IVOSIDENIB
     Indication: Myelodysplastic syndrome
     Dosage: 500 MG, QD
     Route: 048
     Dates: start: 202407, end: 202408

REACTIONS (3)
  - Differentiation syndrome [Recovered/Resolved]
  - Dyspnoea [Recovered/Resolved]
  - Anxiety [Recovered/Resolved]

NARRATIVE: CASE EVENT DATE: 20240801
